FAERS Safety Report 5212119-6 (Version None)
Quarter: 2007Q1

REPORT INFORMATION
  Report Type: 
  Country: None (occurrence: None)
  Receive Date: 20070118
  Receipt Date: 20070109
  Transmission Date: 20070707
  Serious: Yes (Hospitalization)
  Sender: FDA-Public Use
  Company Number: JP-PFIZER INC-2007003174

PATIENT
  Age: 58 Year
  Sex: Male

DRUGS (7)
  1. VIRACEPT [Suspect]
     Indication: HIV INFECTION
     Dosage: DAILY DOSE:2500MG
     Route: 048
  2. STOCRIN [Suspect]
     Indication: HIV INFECTION
     Dosage: DAILY DOSE:600MG
     Route: 048
     Dates: start: 20010323, end: 20050714
  3. VIREAD [Suspect]
     Indication: HIV INFECTION
     Dosage: DAILY DOSE:300MG
     Route: 048
  4. ALOTEC [Concomitant]
  5. BACTRIM [Concomitant]
     Dates: start: 20040708, end: 20041018
  6. ASPIRIN [Concomitant]
  7. MEXITIL [Concomitant]

REACTIONS (8)
  - ASTHENIA [None]
  - BRADYCARDIA [None]
  - DIZZINESS [None]
  - HEADACHE [None]
  - NAUSEA [None]
  - SICK SINUS SYNDROME [None]
  - VENTRICULAR EXTRASYSTOLES [None]
  - VOMITING [None]
